FAERS Safety Report 7758614-7 (Version None)
Quarter: 2011Q3

REPORT INFORMATION
  Report Type: 
  Country: None (occurrence: None)
  Receive Date: 20110825
  Receipt Date: 20110722
  Transmission Date: 20111222
  Serious: Yes (Hospitalization)
  Sender: FDA-Public Use
  Company Number: 332641

PATIENT
  Age: 59 Year
  Sex: Female
  Weight: 78.5 kg

DRUGS (5)
  1. AMARYL [Concomitant]
  2. ACTOS [Concomitant]
  3. SIMVASTATIN [Concomitant]
  4. METFORMIN HCL [Concomitant]
  5. VICTOZA [Suspect]
     Indication: TYPE 2 DIABETES MELLITUS
     Dosage: 1.2 MG, QD
     Dates: start: 20110425, end: 20110713

REACTIONS (1)
  - PANCREATITIS [None]
